FAERS Safety Report 6580050-X (Version None)
Quarter: 2010Q1

REPORT INFORMATION
  Report Type: 
  Country: None (occurrence: None)
  Receive Date: 20100212
  Receipt Date: 20100205
  Transmission Date: 20100710
  Serious: Yes (Hospitalization, Other)
  Sender: FDA-Public Use
  Company Number: FR-AMGEN-UK078796

PATIENT
  Sex: Female
  Weight: 61 kg

DRUGS (10)
  1. ARANESP [Suspect]
     Indication: DIALYSIS
     Route: 042
     Dates: start: 20020711, end: 20030904
  2. NEORECORMON [Suspect]
     Route: 058
     Dates: start: 20030918, end: 20040603
  3. EPREX [Suspect]
     Route: 042
     Dates: start: 19890101, end: 19950801
  4. BROMAZEPAM [Concomitant]
  5. CALCIUM CARBONATE [Concomitant]
  6. TAMOXIFEN CITRATE [Concomitant]
  7. PANTOPRAZOLE [Concomitant]
  8. CALCITRIOL [Concomitant]
  9. POLYSTYRENE SULFONATE [Concomitant]
  10. VITAMIN B COMPLEX CAP [Concomitant]

REACTIONS (3)
  - ANTI-ERYTHROPOIETIN ANTIBODY POSITIVE [None]
  - APLASIA PURE RED CELL [None]
  - HAEMOGLOBIN DECREASED [None]
